FAERS Safety Report 11966981 (Version 1)
Quarter: 2016Q1

REPORT INFORMATION
  Report Type: Spontaneous
  Country: US (occurrence: US)
  Receive Date: 20160127
  Receipt Date: 20160127
  Transmission Date: 20160526
  Serious: Yes (Other)
  Sender: FDA-Public Use
  Company Number: US-BANPHARM-20164591

PATIENT
  Age: 73 Year
  Sex: Female
  Weight: 72.57 kg

DRUGS (1)
  1. CETIRIZINE HCL CAPSULES 10 MG [Suspect]
     Active Substance: CETIRIZINE HYDROCHLORIDE
     Indication: RHINORRHOEA
     Dosage: 1 DF, QD,
     Route: 048
     Dates: start: 20151130, end: 20151201

REACTIONS (4)
  - Palpable purpura [Unknown]
  - Vasculitis [Unknown]
  - Rash pruritic [Unknown]
  - Arthralgia [Unknown]

NARRATIVE: CASE EVENT DATE: 20151130
